FAERS Safety Report 4394668-6 (Version None)
Quarter: 2004Q3

REPORT INFORMATION
  Report Type: 
  Country: None (occurrence: None)
  Receive Date: 20040706
  Receipt Date: 20040624
  Transmission Date: 20050211
  Serious: Yes (Other)
  Sender: FDA-Public Use
  Company Number: HQWYE652324JUN04

PATIENT
  Age: 35 Year
  Sex: Female

DRUGS (3)
  1. PANTOLOC (PANTOPRAZOLE, TABLET, DELAYED RELEASE) [Suspect]
     Dosage: 40 MG 1X PER 1 DAY ORAL
     Route: 048
     Dates: start: 20040501, end: 20040601
  2. MARIJUANA  (CANNABIS [Suspect]
     Dosage: ^SMOKING 1/2 OZ. AND EATING 1/2 OZ.^
  3. EFFEXOR [Concomitant]

REACTIONS (2)
  - DRUG EFFECT DECREASED [None]
  - DRUG INTERACTION [None]
